APPROVED DRUG PRODUCT: ETOMIDATE
Active Ingredient: ETOMIDATE
Strength: 2MG/ML
Dosage Form/Route: INJECTABLE;INJECTION
Application: A091297 | Product #001
Applicant: PH HEALTH LTD
Approved: Jun 20, 2012 | RLD: No | RS: No | Type: DISCN